FAERS Safety Report 7526786-5 (Version None)
Quarter: 2011Q2

REPORT INFORMATION
  Report Type: 
  Country: None (occurrence: None)
  Receive Date: 20110606
  Receipt Date: 20110527
  Transmission Date: 20111010
  Serious: Yes (Hospitalization, Other)
  Sender: FDA-Public Use
  Company Number: US-ASTRAZENECA-2011SE33199

PATIENT
  Sex: Female

DRUGS (5)
  1. ZANTAC [Concomitant]
  2. NEXIUM [Suspect]
     Route: 048
  3. MIGRAINE MED [Concomitant]
     Indication: MIGRAINE
  4. NEXIUM [Suspect]
     Indication: GASTROOESOPHAGEAL REFLUX DISEASE
     Route: 048
     Dates: start: 20030101
  5. ASTHMA MED [Concomitant]
     Indication: ASTHMA

REACTIONS (6)
  - PELVIC FRACTURE [None]
  - PEPTIC ULCER [None]
  - INCORRECT DRUG ADMINISTRATION DURATION [None]
  - FRACTURE TREATMENT [None]
  - PROCEDURAL COMPLICATION [None]
  - INCORRECT DOSE ADMINISTERED [None]
